FAERS Safety Report 24454239 (Version 2)
Quarter: 2024Q4

REPORT INFORMATION
  Report Type: Report from Study
  Country: US (occurrence: US)
  Receive Date: 20241017
  Receipt Date: 20241018
  Transmission Date: 20250114
  Serious: No
  Sender: ROCHE
  Company Number: US-ROCHE-3420340

PATIENT
  Age: 56 Year
  Sex: Male

DRUGS (3)
  1. RITUXAN [Suspect]
     Active Substance: RITUXIMAB
     Indication: Acute lymphocytic leukaemia
     Dosage: DATE OF SERVICE: 15/SEP/2023, 04/OCT/2023, 11/OCT/2023
     Route: 065
  2. VINCRISTINE [Concomitant]
     Active Substance: VINCRISTINE
  3. CYTARABINE [Concomitant]
     Active Substance: CYTARABINE

REACTIONS (2)
  - Off label use [Unknown]
  - No adverse event [Unknown]
